FAERS Safety Report 11789017 (Version 2)
Quarter: 2015Q4

REPORT INFORMATION
  Report Type: Spontaneous
  Country: GB (occurrence: GB)
  Receive Date: 20151201
  Receipt Date: 20151204
  Transmission Date: 20160305
  Serious: Yes (Other)
  Sender: FDA-Public Use
  Company Number: GB-BAYER-2015-475305

PATIENT
  Sex: Female

DRUGS (1)
  1. MIRENA [Suspect]
     Active Substance: LEVONORGESTREL
     Dosage: 20 MCG/24HR, CONT
     Route: 015

REACTIONS (6)
  - Urinary tract infection [Recovering/Resolving]
  - Protein urine present [Recovering/Resolving]
  - Influenza [Recovering/Resolving]
  - Abdominal pain upper [Recovering/Resolving]
  - Feeling of body temperature change [Recovering/Resolving]
  - Pyrexia [Recovering/Resolving]
